FAERS Safety Report 8330066-8 (Version None)
Quarter: 2012Q2

REPORT INFORMATION
  Report Type: 
  Country: None (occurrence: None)
  Receive Date: 20120502
  Receipt Date: 20100104
  Transmission Date: 20120825
  Serious: No
  Sender: FDA-Public Use
  Company Number: US-TEVA-2010000037

PATIENT
  Sex: Female
  Weight: 93.524 kg

DRUGS (14)
  1. EFFEXOR XR [Concomitant]
     Indication: DEPRESSION
     Dosage: 300 MILLIGRAM;
     Dates: start: 20060101
  2. SYNTHROID [Concomitant]
     Indication: HYPOTHYROIDISM
     Dates: start: 19900101
  3. ARICEPT [Concomitant]
     Indication: MEMORY IMPAIRMENT
     Dosage: 10 MILLIGRAM;
     Dates: start: 20091201
  4. MOTRIN [Concomitant]
     Indication: BACK PAIN
     Dosage: 2400 MILLIGRAM;
     Dates: start: 20000101
  5. NUVIGIL [Suspect]
     Indication: SOMNOLENCE
  6. PROVIGIL [Suspect]
     Indication: SOMNOLENCE
  7. ABILIFY [Concomitant]
     Indication: MAJOR DEPRESSION
     Dosage: 15 MILLIGRAM;
     Dates: start: 20080101
  8. AMBIEN [Concomitant]
     Indication: INSOMNIA
  9. SODIUM CHLORIDE [Concomitant]
     Indication: HYPONATRAEMIA
     Dates: start: 20070101
  10. INDERAL [Concomitant]
     Indication: HYPERTENSION
     Dosage: 40 MILLICURIES;
     Dates: start: 20091201
  11. NUVIGIL [Suspect]
     Indication: SLEEP APNOEA SYNDROME
     Dosage: 150 MILLIGRAM;
     Route: 048
     Dates: start: 20091101
  12. PROVIGIL [Suspect]
     Indication: SLEEP APNOEA SYNDROME
     Dosage: 400 MILLIGRAM;
     Route: 048
     Dates: start: 20090101, end: 20091101
  13. ATIVAN [Concomitant]
     Indication: ANXIETY
     Dosage: 4 MILLIGRAM;
     Dates: start: 20060101
  14. TAGAMET [Concomitant]
     Indication: ABDOMINAL DISCOMFORT
     Dosage: 800 MILLIGRAM;
     Route: 048

REACTIONS (8)
  - RHINORRHOEA [None]
  - SWELLING FACE [None]
  - IRRITABILITY [None]
  - NAUSEA [None]
  - DYSPNOEA [None]
  - GASTROINTESTINAL MOTILITY DISORDER [None]
  - OROPHARYNGEAL PAIN [None]
  - ABDOMINAL DISTENSION [None]
